FAERS Safety Report 5688183-7 (Version None)
Quarter: 2008Q1

REPORT INFORMATION
  Report Type: 
  Country: None (occurrence: None)
  Receive Date: 20080327
  Receipt Date: 20080314
  Transmission Date: 20080703
  Serious: Yes (Death)
  Sender: FDA-Public Use
  Company Number: 2008000600

PATIENT
  Age: 58 Year
  Sex: Male

DRUGS (4)
  1. ERLOTINIB (ERLOTINIB HCL) (TABLET) (ERLOTINIB HCL) [Suspect]
     Indication: NON-SMALL CELL LUNG CANCER METASTATIC
     Dosage: (150 MG, QD), ORAL
     Route: 048
     Dates: start: 20071009, end: 20071109
  2. CARBOPLATIN [Concomitant]
  3. ETOPOSIDE [Concomitant]
  4. DOCETAXEL [Concomitant]

REACTIONS (5)
  - BLOOD LACTATE DEHYDROGENASE INCREASED [None]
  - CARDIO-RESPIRATORY ARREST [None]
  - GAMMA-GLUTAMYLTRANSFERASE INCREASED [None]
  - RASH [None]
  - WHITE BLOOD CELL COUNT INCREASED [None]
